FAERS Safety Report 6343026-3 (Version None)
Quarter: 2009Q3

REPORT INFORMATION
  Report Type: 
  Country: None (occurrence: None)
  Receive Date: 20090821
  Receipt Date: 20090605
  Transmission Date: 20100115
  Serious: No
  Sender: FDA-Public Use
  Company Number: 8047579

PATIENT
  Age: 54 Year
  Sex: Female
  Weight: 77.1 kg

DRUGS (14)
  1. CIMZIA [Suspect]
     Indication: CROHN'S DISEASE
     Dosage: 400 MG SC
     Route: 058
     Dates: start: 20090314
  2. SULFASALAZINE [Concomitant]
  3. HYDROCORTISONE CREAM [Concomitant]
  4. LISINOPRILW/ HCTZ [Concomitant]
  5. AMLODIPINE [Concomitant]
  6. ARMOUR THYROID [Concomitant]
  7. TRAMADOL HCL [Concomitant]
  8. AMBIEN [Concomitant]
  9. IRON [Concomitant]
  10. FOLIC ACID [Concomitant]
  11. NEXIUM [Concomitant]
  12. PROGESTERONE/ESTROGEN [Concomitant]
  13. ESTROGEN SL [Concomitant]
  14. RANITINDE [Concomitant]

REACTIONS (4)
  - ARTHRALGIA [None]
  - OEDEMA [None]
  - OSTEOPENIA [None]
  - PANIC ATTACK [None]
